FAERS Safety Report 5795114-8 (Version None)
Quarter: 2008Q2

REPORT INFORMATION
  Report Type: 
  Country: None (occurrence: None)
  Receive Date: 20080630
  Receipt Date: 20080506
  Transmission Date: 20081010
  Serious: No
  Sender: FDA-Public Use
  Company Number: US-BRISTOL-MYERS SQUIBB COMPANY-14153068

PATIENT
  Age: 50 Year
  Sex: Female
  Weight: 76 kg

DRUGS (6)
  1. ORENCIA [Suspect]
     Indication: RHEUMATOID ARTHRITIS
     Route: 042
     Dates: start: 20080415, end: 20080415
  2. ORUVAIL [Concomitant]
  3. PLAQUENIL [Concomitant]
  4. FOLIC ACID [Concomitant]
  5. NEXIUM [Concomitant]
  6. METHOTREXATE [Concomitant]

REACTIONS (1)
  - HYPERSENSITIVITY [None]
